FAERS Safety Report 24720676 (Version 1)
Quarter: 2024Q4

REPORT INFORMATION
  Report Type: Spontaneous
  Country: US (occurrence: US)
  Receive Date: 20241211
  Receipt Date: 20241211
  Transmission Date: 20250115
  Serious: No
  Sender: CELLTRION
  Company Number: US-CELLTRION INC.-2024US024113

PATIENT

DRUGS (1)
  1. ZYMFENTRA [Suspect]
     Active Substance: INFLIXIMAB-DYYB
     Indication: Product used for unknown indication
     Dosage: 120MG/ML PEN KIT -INJECT THE CONTENTS OF ONE DEVICE
     Route: 065

REACTIONS (3)
  - Injection site mass [Unknown]
  - Injection site haemorrhage [Unknown]
  - Injection site pain [Unknown]
